FAERS Safety Report 12743174 (Version 1)
Quarter: 2016Q3

REPORT INFORMATION
  Report Type: Spontaneous
  Country: US (occurrence: US)
  Receive Date: 20160914
  Receipt Date: 20160914
  Transmission Date: 20161109
  Serious: No
  Sender: FDA-Public Use
  Company Number: US-TEVA-690941USA

PATIENT
  Sex: Female
  Weight: 75.82 kg

DRUGS (2)
  1. QVAR [Suspect]
     Active Substance: BECLOMETHASONE DIPROPIONATE
     Indication: CHRONIC OBSTRUCTIVE PULMONARY DISEASE
     Dates: start: 20160823
  2. QVAR [Suspect]
     Active Substance: BECLOMETHASONE DIPROPIONATE
     Dates: start: 1980

REACTIONS (4)
  - Pancreatic disorder [Unknown]
  - Renal disorder [Unknown]
  - Benign neoplasm of thyroid gland [Unknown]
  - Thyroid disorder [Unknown]
